FAERS Safety Report 9302111 (Version 4)
Quarter: 2013Q4

REPORT INFORMATION
  Report Type: Spontaneous
  Country: US (occurrence: US)
  Receive Date: 20130521
  Receipt Date: 20131122
  Transmission Date: 20140711
  Serious: Yes (Hospitalization, Other)
  Sender: FDA-Public Use
  Company Number: US-BRISTOL-MYERS SQUIBB COMPANY-18895243

PATIENT
  Age: 25 Year
  Sex: Female
  Weight: 133.78 kg

DRUGS (13)
  1. BYETTA [Suspect]
     Indication: TYPE 2 DIABETES MELLITUS
     Dates: start: 20070105, end: 200708
  2. GLUCOPHAGE [Suspect]
  3. WELLBUTRIN XL [Suspect]
  4. GEODON [Suspect]
  5. XANAX [Suspect]
  6. TOPAMAX [Suspect]
  7. PROZAC [Suspect]
  8. SYNTHROID [Suspect]
     Dates: start: 1993
  9. CLONAZEPAM [Concomitant]
  10. RIFAMPIN [Concomitant]
  11. SEROQUEL [Concomitant]
  12. SPIRONOLACTONE [Concomitant]
  13. DORYX [Concomitant]

REACTIONS (2)
  - Papillary thyroid cancer [Unknown]
  - Suicidal ideation [Unknown]
